FAERS Safety Report 9522717 (Version 1)
Quarter: 2013Q1

REPORT INFORMATION
  Report Type: Spontaneous
  Country: US (occurrence: None)
  Receive Date: 20130305
  Receipt Date: 20130305
  Transmission Date: 20140127
  Serious: Yes (Other)
  Sender: FDA-Public Use
  Company Number: 163-21880-12032335

PATIENT
  Age: 82 Year
  Sex: Male
  Weight: 81.5 kg

DRUGS (2)
  1. REVLIMID (LENALIDOMIDE) (CAPSULES) [Suspect]
     Indication: PLASMA CELL MYELOMA
     Dosage: 10 MG, X 21 DAYS/28 DAY CYCLE, PO
     Route: 048
     Dates: start: 20120221, end: 201203
  2. ZOMETA (ZOLEDRONIC ACID) (UNKNOWN) [Concomitant]

REACTIONS (1)
  - Creatinine renal clearance decreased [None]
